FAERS Safety Report 7006698-6 (Version None)
Quarter: 2010Q3

REPORT INFORMATION
  Report Type: 
  Country: None (occurrence: None)
  Receive Date: 20100922
  Receipt Date: 20100831
  Transmission Date: 20110219
  Serious: Yes (Hospitalization)
  Sender: FDA-Public Use
  Company Number: US-BIOGENIDEC-2010BI018470

PATIENT
  Age: 38 Year
  Sex: Female
  Weight: 77 kg

DRUGS (9)
  1. TYSABRI [Suspect]
     Indication: MULTIPLE SCLEROSIS
     Route: 042
     Dates: start: 20080611
  2. EFFEXOR [Concomitant]
     Indication: DEPRESSION
  3. ZANAFLEX [Concomitant]
     Indication: MUSCLE SPASMS
  4. VALTREX [Concomitant]
     Indication: ORAL HERPES
  5. SINGULAIR [Concomitant]
     Indication: ASTHMA
  6. SYNTHROID [Concomitant]
     Indication: HYPOTHYROIDISM
  7. KLONOPIN [Concomitant]
     Indication: DEPRESSION
  8. XANAX [Concomitant]
     Indication: ANXIETY
  9. SOMA [Concomitant]
     Indication: ANXIETY

REACTIONS (9)
  - CYSTITIS [None]
  - GASTRIC ULCER [None]
  - GASTROOESOPHAGEAL REFLUX DISEASE [None]
  - GLAUCOMA [None]
  - IRRITABLE BOWEL SYNDROME [None]
  - MIGRAINE [None]
  - MULTIPLE SCLEROSIS RELAPSE [None]
  - PRURITUS [None]
  - WHITE BLOOD CELL COUNT DECREASED [None]
